FAERS Safety Report 5078464-2 (Version None)
Quarter: 2006Q3

REPORT INFORMATION
  Report Type: 
  Country: None (occurrence: None)
  Receive Date: 20060808
  Receipt Date: 20060726
  Transmission Date: 20061208
  Serious: Yes (Death)
  Sender: FDA-Public Use
  Company Number: A-CH2006-12573

PATIENT
  Age: 77 Year
  Sex: Male

DRUGS (12)
  1. TRACLEER [Suspect]
     Indication: PULMONARY HYPERTENSION
     Dosage: SEE IMAGE
     Route: 048
     Dates: start: 20031204, end: 20040104
  2. TRACLEER [Suspect]
     Indication: PULMONARY HYPERTENSION
     Dosage: SEE IMAGE
     Route: 048
     Dates: start: 20040105, end: 20060429
  3. DURAGESIC-100 [Concomitant]
  4. ACETAMINOPHEN [Concomitant]
  5. ALDACTONE [Concomitant]
  6. BUMETANIDE [Concomitant]
  7. PANTOZOL (PANTOPRAZOLE SODIUM) [Concomitant]
  8. NEURONTIN [Concomitant]
  9. PREDNISONE TAB [Concomitant]
  10. MOVICOLON (SODIUM CHLORIDE, SODIUM BICARBONATE, POTASSIUM CHLORIDE, MA [Concomitant]
  11. ACENOCOUMAROL (ACENOCOUMAROL) [Concomitant]
  12. OMNIC (TAMSULOSIN HYDROCHLORIDE) [Concomitant]

REACTIONS (1)
  - CARDIAC ARREST [None]
